FAERS Safety Report 4973361-2 (Version None)
Quarter: 2006Q2

REPORT INFORMATION
  Report Type: 
  Country: None (occurrence: None)
  Receive Date: 20060414
  Receipt Date: 20060323
  Transmission Date: 20061013
  Serious: Yes (Life-Threatening, Hospitalization)
  Sender: FDA-Public Use
  Company Number: JP-BOEHRINGER INGELHEIM PHARMACEUTICALS, INC.-2006-BP-03626NB

PATIENT
  Sex: Female

DRUGS (3)
  1. MICARDIS [Suspect]
     Indication: HYPERTENSION
     Route: 048
     Dates: start: 20050911, end: 20051017
  2. ZYLORIC [Suspect]
     Indication: HYPERURICAEMIA
     Route: 048
     Dates: start: 20050911, end: 20051011
  3. CONIEL [Suspect]
     Indication: HYPERTENSION
     Route: 048
     Dates: start: 20050920, end: 20051018

REACTIONS (2)
  - LYMPHOCYTE STIMULATION TEST POSITIVE [None]
  - STEVENS-JOHNSON SYNDROME [None]
